FAERS Safety Report 21017270 (Version 1)
Quarter: 2022Q2

REPORT INFORMATION
  Report Type: Spontaneous
  Country: US (occurrence: US)
  Receive Date: 20220628
  Receipt Date: 20220628
  Transmission Date: 20220721
  Serious: No
  Sender: FDA-Public Use
  Company Number: US-MYLANLABS-2022M1046241

PATIENT
  Sex: Female
  Weight: 63.5 kg

DRUGS (2)
  1. ESTRADIOL TRANSDERMAL SYSTEM [Suspect]
     Active Substance: ESTRADIOL
     Indication: Menopause
     Dosage: 0.075 MILLIGRAM, QD( CHANGED TO TWICE WEEKLY)
     Route: 062
  2. PROMETRIUM [Concomitant]
     Active Substance: PROGESTERONE
     Dosage: 100 MILLIGRAM
     Route: 065

REACTIONS (2)
  - Product adhesion issue [Unknown]
  - Application site pruritus [Unknown]
